FAERS Safety Report 4726091-6 (Version None)
Quarter: 2005Q3

REPORT INFORMATION
  Report Type: 
  Country: None (occurrence: None)
  Receive Date: 20050727
  Receipt Date: 20050720
  Transmission Date: 20060218
  Serious: Yes (Other)
  Sender: FDA-Public Use
  Company Number: US-BRISTOL-MYERS SQUIBB COMPANY-13044920

PATIENT
  Sex: Male

DRUGS (3)
  1. ERBITUX [Suspect]
     Indication: COLON CANCER METASTATIC
     Route: 042
  2. COUMADIN [Suspect]
  3. LOVENOX [Concomitant]

REACTIONS (2)
  - HYPERCHOLESTEROLAEMIA [None]
  - HYPERTRIGLYCERIDAEMIA [None]
